FAERS Safety Report 9340450 (Version 3)
Quarter: 2013Q4

REPORT INFORMATION
  Report Type: Report from Study
  Country: BE (occurrence: BE)
  Receive Date: 20130610
  Receipt Date: 20131011
  Transmission Date: 20140711
  Serious: Yes (Hospitalization)
  Sender: FDA-Public Use
  Company Number: BE-BRISTOL-MYERS SQUIBB COMPANY-18892174

PATIENT
  Age: 60 Year
  Sex: Male
  Weight: 71 kg

DRUGS (27)
  1. BMS906024 [Suspect]
     Indication: NEOPLASM
     Dosage: THERAPY DATES:16MAY13,23MAY13
     Route: 042
     Dates: start: 20130502
  2. CARBOPLATIN [Suspect]
     Indication: NEOPLASM
     Dosage: 1 DF = AUC 6?THERAPY DATES:02MAY13,23MAY13
     Route: 042
     Dates: start: 20130410
  3. PACLITAXEL [Suspect]
     Indication: NEOPLASM
     Dosage: THERAPY DATES:02MAY2013,23MAY13
     Route: 042
     Dates: start: 20130410
  4. IMMODIUM [Suspect]
     Dates: start: 20130504
  5. DEXAMETHASONE [Suspect]
     Route: 048
     Dates: start: 20130412, end: 20130413
  6. ZANTAC [Suspect]
     Dosage: 10APR13:50MG?02MAY13:150MG
     Route: 042
     Dates: start: 20130410, end: 20130502
  7. ZOFRAN [Concomitant]
     Dosage: 10APR13:8MG?12APR-13APR13:16MG?14APR13 ONWARD
     Route: 042
     Dates: start: 20130410, end: 20130411
  8. PHENERGAN [Concomitant]
     Dosage: 10APR13:25MG?02MAY13:25MG
     Route: 030
     Dates: start: 20130410, end: 20130502
  9. XYZALL [Concomitant]
     Dosage: WEEK PRIOR TO BMS906024
     Route: 048
     Dates: start: 20130502, end: 20130502
  10. PARACETAMOL [Concomitant]
     Dosage: 14MAY13
     Dates: start: 201205
  11. BLOPRESS [Concomitant]
     Dates: start: 201205
  12. ERYTHROPOIETIN [Concomitant]
     Dates: start: 201302
  13. LANSOPRAZOLE [Concomitant]
     Dates: start: 201205
  14. SOLU-MEDROL [Concomitant]
     Dosage: 10APR13: 125 MG?11APR13: 40MG?02MAY13: 40MG
     Route: 042
     Dates: start: 20130410, end: 20130502
  15. PARAFFIN [Concomitant]
     Dates: start: 20130416
  16. SOFTENE [Concomitant]
     Dates: start: 20130430
  17. LITICAN [Concomitant]
     Route: 042
     Dates: start: 20130510
  18. POTASSIUM CHLORIDE [Concomitant]
     Route: 048
     Dates: start: 20130430
  19. CONTRAMAL [Concomitant]
     Dosage: 15MAY2013
     Dates: start: 20130419
  20. LASIX [Concomitant]
     Dates: start: 20130516
  21. ALPRAZOLAM [Concomitant]
     Dates: start: 20130515
  22. MAGNESIUM SULFATE [Concomitant]
     Dates: start: 20130515
  23. TRANEXAMIC ACID [Concomitant]
     Dates: start: 20130515
  24. MOVICOL [Concomitant]
     Dates: start: 20130516
  25. CALCIUM GLUCONATE [Concomitant]
     Dates: start: 20130513
  26. PIPERACILLIN + TAZOBACTAM [Concomitant]
  27. POTASSIUM PHOSPHATE [Concomitant]

REACTIONS (2)
  - Electrolyte imbalance [Recovered/Resolved]
  - Anaemia [Recovered/Resolved]
